FAERS Safety Report 8534850-7 (Version None)
Quarter: 2012Q3

REPORT INFORMATION
  Report Type: 
  Country: None (occurrence: None)
  Receive Date: 20120724
  Receipt Date: 20120709
  Transmission Date: 20120928
  Serious: No
  Sender: FDA-Public Use
  Company Number: US-ASTRAZENECA-2011SE47297

PATIENT
  Age: 48 Year
  Sex: Male

DRUGS (9)
  1. ATENOLOL [Suspect]
     Route: 048
     Dates: start: 20110317
  2. HYDROCHLOROTHIAZIDE [Concomitant]
     Indication: HYPERTENSION
  3. LISINOPRIL [Suspect]
     Route: 048
     Dates: start: 20110317
  4. LORATADINE [Concomitant]
     Indication: COUGH
  5. SYMBICORT [Suspect]
     Indication: CHRONIC OBSTRUCTIVE PULMONARY DISEASE
     Dosage: 160/4.5 MCG ONE AEROSOL TWO PUFFS TWO TIMES A DAY, THREE AEROSOLS
     Route: 055
     Dates: start: 20110729
  6. SPIRIVA [Concomitant]
     Indication: CHRONIC OBSTRUCTIVE PULMONARY DISEASE
  7. METFORMIN HCL [Concomitant]
     Indication: TYPE 2 DIABETES MELLITUS
  8. IPRATROPIUM BROMIDE AND ALBUTEROL SULFATE [Concomitant]
     Indication: CHRONIC OBSTRUCTIVE PULMONARY DISEASE
  9. PROVENTIL-HFA [Concomitant]
     Indication: CHRONIC OBSTRUCTIVE PULMONARY DISEASE

REACTIONS (2)
  - TYPE 2 DIABETES MELLITUS [None]
  - HYPERTENSION [None]
